FAERS Safety Report 4877288-6 (Version None)
Quarter: 2006Q1

REPORT INFORMATION
  Report Type: 
  Country: None (occurrence: None)
  Receive Date: 20060106
  Receipt Date: 20051230
  Transmission Date: 20060701
  Serious: Yes (Life-Threatening, Hospitalization, Other)
  Sender: FDA-Public Use
  Company Number: 2005-11-1663

PATIENT
  Age: 47 Year
  Sex: Male

DRUGS (7)
  1. TEMODAL [Suspect]
     Indication: GLIOBLASTOMA
     Dosage: 160-80 MG QD* ORAL
     Route: 048
     Dates: start: 20050809, end: 20050908
  2. TEMODAL [Suspect]
     Indication: GLIOBLASTOMA
     Dosage: 160-80 MG QD* ORAL
     Route: 048
     Dates: start: 20050809
  3. TEMODAL [Suspect]
     Indication: GLIOBLASTOMA
     Dosage: 160-80 MG QD* ORAL
     Route: 048
     Dates: start: 20051128
  4. RADIATION THERAPY NO DOSE FORM [Suspect]
     Indication: GLIOBLASTOMA
     Dosage: 1.9 GY X-RAY THERAPY
     Dates: start: 20050809, end: 20050912
  5. DEXAMETASON TABLETS [Concomitant]
  6. TRILEPTAL TABLETS [Concomitant]
  7. DITRIM [Concomitant]

REACTIONS (3)
  - BONE MARROW FAILURE [None]
  - NEUTROPENIC SEPSIS [None]
  - THROMBOCYTOPENIA [None]
